FAERS Safety Report 15272088 (Version 1)
Quarter: 2018Q3

REPORT INFORMATION
  Report Type: Spontaneous
  Country: US (occurrence: US)
  Receive Date: 20180813
  Receipt Date: 20180813
  Transmission Date: 20181010
  Serious: Yes (Hospitalization, Other)
  Sender: FDA-Public Use
  Company Number: US-BAYER-2018-146026

PATIENT
  Sex: Female

DRUGS (1)
  1. BETASERON [Suspect]
     Active Substance: INTERFERON BETA-1B
     Indication: MULTIPLE SCLEROSIS
     Dosage: 0.25 MG/ML, QOD
     Route: 058
     Dates: start: 1993

REACTIONS (5)
  - Multiple sclerosis relapse [Recovered/Resolved]
  - Depressed mood [None]
  - Gait inability [Recovered/Resolved]
  - Depression [None]
  - Thyroid disorder [None]

NARRATIVE: CASE EVENT DATE: 2006
